FAERS Safety Report 10254860 (Version 1)
Quarter: 2014Q2

REPORT INFORMATION
  Report Type: Spontaneous
  Country: US (occurrence: US)
  Receive Date: 20140624
  Receipt Date: 20140624
  Transmission Date: 20141212
  Serious: No
  Sender: FDA-Public Use
  Company Number: US-009507513-1406USA008941

PATIENT
  Sex: Female

DRUGS (3)
  1. PEGINTRON [Suspect]
     Indication: CHRONIC HEPATITIS C
     Dosage: 1 INJECTION WEEKLY
     Dates: start: 20140527
  2. REBETOL [Suspect]
     Indication: CHRONIC HEPATITIS C
     Dosage: 200 MG 6 A DAY 1
     Route: 048
  3. SOVALDI [Suspect]
     Indication: CHRONIC HEPATITIS C
     Dosage: 6 A DAY 1

REACTIONS (2)
  - Visual impairment [Unknown]
  - Product quality issue [Unknown]
